FAERS Safety Report 18318683 (Version 2)
Quarter: 2020Q4

REPORT INFORMATION
  Report Type: Spontaneous
  Country: US (occurrence: US)
  Receive Date: 20200928
  Receipt Date: 20201002
  Transmission Date: 20210113
  Serious: Yes (Hospitalization)
  Sender: FDA-Public Use
  Company Number: US-JNJFOC-20200940893

PATIENT
  Sex: Male

DRUGS (1)
  1. LEVAQUIN [Suspect]
     Active Substance: LEVOFLOXACIN
     Indication: INFECTED BITE
     Route: 065
     Dates: start: 201609

REACTIONS (3)
  - Suicide attempt [Unknown]
  - Psychotic disorder [Unknown]
  - Seizure [Unknown]

NARRATIVE: CASE EVENT DATE: 201610
